FAERS Safety Report 15616070 (Version 1)
Quarter: 2018Q4

REPORT INFORMATION
  Report Type: Spontaneous
  Country: US (occurrence: US)
  Receive Date: 20181108
  Receipt Date: 20181108
  Transmission Date: 20190205
  Serious: Yes (Death, Hospitalization)
  Sender: FDA-Public Use
  Company Number: None

PATIENT
  Age: 67 Year
  Sex: Male
  Weight: 101.92 kg

DRUGS (1)
  1. LISINOPRIL. [Suspect]
     Active Substance: LISINOPRIL
     Indication: HYPERTENSION
     Dosage: 10 MG AM PO
     Route: 048
     Dates: start: 20110720, end: 20180808

REACTIONS (13)
  - Renal failure [None]
  - Renal replacement therapy [None]
  - Mechanical ventilation complication [None]
  - Angioedema [None]
  - Transfusion [None]
  - Rectal haemorrhage [None]
  - Pneumonia [None]
  - Hypoglycaemia [None]
  - Pancreatitis [None]
  - Proctalgia [None]
  - Hypoxia [None]
  - Septic shock [None]
  - Gastrointestinal haemorrhage [None]

NARRATIVE: CASE EVENT DATE: 20180808
